FAERS Safety Report 9344710 (Version 1)
Quarter: 2013Q2

REPORT INFORMATION
  Report Type: Spontaneous
  Country: US (occurrence: US)
  Receive Date: 20130612
  Receipt Date: 20130612
  Transmission Date: 20140414
  Serious: Yes (Other)
  Sender: FDA-Public Use
  Company Number: US-PFIZER INC-2013172199

PATIENT
  Age: 60 Year
  Sex: Female
  Weight: 73.02 kg

DRUGS (19)
  1. XELJANZ [Suspect]
     Dosage: 5 MG, TWICE DAILY
     Route: 048
     Dates: end: 2013
  2. LIPITOR [Concomitant]
     Dosage: 20 MG
  3. REVATIO [Concomitant]
     Dosage: 20 MG
  4. SINGULAIR [Concomitant]
     Dosage: 10 MG
  5. PROCARDIA XL [Concomitant]
     Dosage: 60 MG CR
  6. REMODULIN [Concomitant]
     Dosage: 10 MG/ML
  7. AMBIEN [Concomitant]
     Dosage: 6.25 MG
  8. COUMADINE [Concomitant]
     Dosage: 5 MG
  9. CHELATED POTASSIUM [Concomitant]
     Dosage: UNK
  10. NEXIUM [Concomitant]
     Dosage: 40 MG
  11. PREDNISONE [Concomitant]
     Dosage: 5 MG
  12. FOLIC ACID [Concomitant]
     Dosage: 1 MG
  13. OXYCODONE [Concomitant]
     Dosage: 5 MG
  14. LEVOXYL [Concomitant]
     Dosage: 150 UG
  15. ZOFRAN [Concomitant]
     Dosage: 4 MG
  16. METHOTREXATE [Concomitant]
     Dosage: 2.5 MG
  17. CALCIUM CITRATE/COLECALCIFEROL [Concomitant]
     Dosage: UNK
  18. VITAMIN D [Concomitant]
     Dosage: 2000 UNIT
  19. MAGNESIUM OXIDE [Concomitant]
     Dosage: 400 MG

REACTIONS (3)
  - Fall [Unknown]
  - Fracture [Unknown]
  - Drug interaction [Unknown]
